FAERS Safety Report 7312102-0 (Version None)
Quarter: 2011Q1

REPORT INFORMATION
  Report Type: 
  Country: None (occurrence: None)
  Receive Date: 20110224
  Receipt Date: 20110210
  Transmission Date: 20110831
  Serious: Yes (Hospitalization)
  Sender: FDA-Public Use
  Company Number: US-ELI_LILLY_AND_COMPANY-US201102003458

PATIENT
  Sex: Female

DRUGS (3)
  1. ANALGESICS [Concomitant]
  2. SYNTHROID [Concomitant]
  3. FORTEO [Suspect]
     Indication: OSTEOPOROSIS
     Dosage: 20 UG, DAILY (1/D)
     Dates: start: 20110118

REACTIONS (4)
  - DEMENTIA ALZHEIMER'S TYPE [None]
  - INCOHERENT [None]
  - MOBILITY DECREASED [None]
  - EATING DISORDER [None]
